FAERS Safety Report 20490691 (Version 4)
Quarter: 2022Q2

REPORT INFORMATION
  Report Type: Report from Study
  Country: JP (occurrence: JP)
  Receive Date: 20220218
  Receipt Date: 20220526
  Transmission Date: 20220721
  Serious: Yes (Death, Hospitalization, Other)
  Sender: FDA-Public Use
  Company Number: JP-BRISTOL-MYERS SQUIBB COMPANY-BMS-2022-023108

PATIENT
  Age: 74 Year
  Sex: Male
  Weight: 44.9 kg

DRUGS (4)
  1. YERVOY [Suspect]
     Active Substance: IPILIMUMAB
     Indication: Non-small cell lung cancer recurrent
     Dosage: NUMBER OF DOSES DURING THE PERIOD TO BE COLLECTED: 2 TIMES
     Route: 041
     Dates: start: 20210406, end: 20210519
  2. YERVOY [Suspect]
     Active Substance: IPILIMUMAB
  3. OPDIVO [Suspect]
     Active Substance: NIVOLUMAB
     Indication: Non-small cell lung cancer recurrent
     Route: 041
     Dates: start: 20210406, end: 20210609
  4. OPDIVO [Suspect]
     Active Substance: NIVOLUMAB

REACTIONS (4)
  - Malignant neoplasm progression [Fatal]
  - Pleural effusion [Recovering/Resolving]
  - Pneumonitis [Recovering/Resolving]
  - Adhesion [Unknown]

NARRATIVE: CASE EVENT DATE: 20210630
